FAERS Safety Report 7918677-2 (Version None)
Quarter: 2011Q4

REPORT INFORMATION
  Report Type: 
  Country: None (occurrence: None)
  Receive Date: 20111116
  Receipt Date: 20111108
  Transmission Date: 20120403
  Serious: Yes (Hospitalization, Other)
  Sender: FDA-Public Use
  Company Number: CHPA2011US14911

PATIENT
  Age: 63 Year
  Sex: Female

DRUGS (2)
  1. PREVACID 24 HR [Suspect]
     Indication: GASTROOESOPHAGEAL REFLUX DISEASE
     Dosage: UNK, UNK
     Route: 048
     Dates: start: 20111020, end: 20111021
  2. PREVACID 24 HR [Suspect]
     Indication: DYSPEPSIA

REACTIONS (8)
  - DYSPNOEA [None]
  - INCORRECT DRUG ADMINISTRATION DURATION [None]
  - STENT PLACEMENT [None]
  - CHOLELITHIASIS [None]
  - MALAISE [None]
  - GALLBLADDER OPERATION [None]
  - DRUG INEFFECTIVE FOR UNAPPROVED INDICATION [None]
  - JAUNDICE [None]
